FAERS Safety Report 20451021 (Version 1)
Quarter: 2022Q1

REPORT INFORMATION
  Report Type: Spontaneous
  Country: US (occurrence: US)
  Receive Date: 20220209
  Receipt Date: 20220209
  Transmission Date: 20220423
  Serious: Yes (Other)
  Sender: FDA-Public Use
  Company Number: US-SANOFI-00956743

PATIENT
  Age: 73 Year
  Sex: Female

DRUGS (1)
  1. TOUJEO [Suspect]
     Active Substance: INSULIN GLARGINE
     Indication: Diabetes mellitus
     Dosage: 26 IU, QD
     Dates: start: 2016

REACTIONS (3)
  - Breast cancer female [Recovered/Resolved]
  - Cholecystitis infective [Unknown]
  - Diabetes mellitus inadequate control [Recovered/Resolved]
